FAERS Safety Report 14474756 (Version 1)
Quarter: 2018Q1

REPORT INFORMATION
  Report Type: Spontaneous
  Country: US (occurrence: US)
  Receive Date: 20180201
  Receipt Date: 20180201
  Transmission Date: 20180509
  Serious: Yes (Other)
  Sender: FDA-Public Use
  Company Number: US-PFIZER INC-2018041632

PATIENT
  Age: 61 Year
  Sex: Female
  Weight: 72.57 kg

DRUGS (3)
  1. BUPROPION. [Suspect]
     Active Substance: BUPROPION
     Indication: DEPRESSION
     Dosage: UNK
     Dates: end: 201711
  2. PRISTIQ EXTENDED-RELEASE [Concomitant]
     Active Substance: DESVENLAFAXINE SUCCINATE
     Indication: DEPRESSION
     Dosage: 100MG TABLET EVERY EVENING
  3. LYRICA [Suspect]
     Active Substance: PREGABALIN
     Indication: FIBROMYALGIA
     Dosage: 100MG CAPSULE BY MOUTH TWICE DAILY
     Route: 048

REACTIONS (7)
  - Loss of personal independence in daily activities [Unknown]
  - Seizure [Not Recovered/Not Resolved]
  - Fall [Unknown]
  - Amnesia [Unknown]
  - Stress [Unknown]
  - Weight increased [Unknown]
  - Transient ischaemic attack [Not Recovered/Not Resolved]

NARRATIVE: CASE EVENT DATE: 20170513
